FAERS Safety Report 18973700 (Version 2)
Quarter: 2021Q1

REPORT INFORMATION
  Report Type: Spontaneous
  Country: US (occurrence: US)
  Receive Date: 20210305
  Receipt Date: 20210317
  Transmission Date: 20210420
  Serious: Yes (Hospitalization, Other)
  Sender: FDA-Public Use
  Company Number: US-PFIZER INC-2021197944

PATIENT
  Age: 6 Year
  Sex: Female

DRUGS (1)
  1. CARBOPLATIN. [Suspect]
     Active Substance: CARBOPLATIN
     Indication: GLIOMA
     Dosage: 560 MG/M2, CYCLIC (MONTHLY)

REACTIONS (6)
  - Toxicity to various agents [Recovering/Resolving]
  - Haemorrhage [Recovering/Resolving]
  - Hydronephrosis [Recovering/Resolving]
  - Vomiting [Recovering/Resolving]
  - Haematuria [Recovered/Resolved]
  - Nausea [Recovering/Resolving]
